FAERS Safety Report 8136125-7 (Version None)
Quarter: 2012Q1

REPORT INFORMATION
  Report Type: 
  Country: None (occurrence: None)
  Receive Date: 20120214
  Receipt Date: 20120106
  Transmission Date: 20120608
  Serious: No
  Sender: FDA-Public Use
  Company Number: US-COVIDIEN/TYCO HEALTHCARE/MALLINCKRODT-T201200046

PATIENT
  Sex: Female
  Weight: 77.551 kg

DRUGS (3)
  1. FENTANYL-100 [Suspect]
     Indication: PAIN
     Dosage: 100 UG/HR, 1 FTS EVERY 2 DAYS
     Route: 062
  2. MORPHINE SULFATE [Concomitant]
     Indication: PAIN
     Dosage: 30 MG, BID
     Route: 048
  3. OXYCODONE HYDROCHLORIDE [Concomitant]
     Indication: PAIN
     Dosage: 30 MG, EVERY 4 HOURS

REACTIONS (3)
  - PAIN [None]
  - CRYING [None]
  - WITHDRAWAL SYNDROME [None]
